FAERS Safety Report 6700313-4 (Version None)
Quarter: 2010Q2

REPORT INFORMATION
  Report Type: 
  Country: None (occurrence: None)
  Receive Date: 20100428
  Receipt Date: 20100422
  Transmission Date: 20101027
  Serious: Yes (Hospitalization)
  Sender: FDA-Public Use
  Company Number: JP-ROCHE-689453

PATIENT
  Sex: Male
  Weight: 92 kg

DRUGS (2)
  1. CAPECITABINE [Suspect]
     Indication: COLON CANCER
     Dosage: NOTE: IT IS ONE ADMINISTERING WEEKLY HOLIDAY MEDICINE FOR TWO WEEKS., XELODA 300
     Route: 048
     Dates: start: 20081126, end: 20090116
  2. AMLODIN [Concomitant]
     Route: 048

REACTIONS (1)
  - CHOLECYSTITIS ACUTE [None]
